FAERS Safety Report 23491780 (Version 1)
Quarter: 2024Q1

REPORT INFORMATION
  Report Type: Report from Study
  Country: US (occurrence: US)
  Receive Date: 20240207
  Receipt Date: 20240207
  Transmission Date: 20240409
  Serious: No
  Sender: FDA-Public Use
  Company Number: US-ORG100014127-2023000532

PATIENT
  Age: 39 Year
  Sex: Male

DRUGS (6)
  1. LYSODREN [Suspect]
     Active Substance: MITOTANE
     Indication: Adrenal gland cancer
     Dosage: 4 TABLETS (2000 MG) TWICE DAILY
     Route: 048
     Dates: start: 20221103
  2. ADVAIR HFA AER 45/21 [Concomitant]
     Indication: Product used for unknown indication
  3. ALBUTEROL AER HFA [Concomitant]
     Indication: Product used for unknown indication
  4. HYDROCORT OIN 1% [Concomitant]
     Indication: Product used for unknown indication
  5. LISINOPRIL [Concomitant]
     Active Substance: LISINOPRIL
     Indication: Product used for unknown indication
  6. VITAMIN D CAP 1.25MG [Concomitant]
     Indication: Product used for unknown indication

REACTIONS (1)
  - Adverse event [Unknown]
